FAERS Safety Report 11751342 (Version 3)
Quarter: 2018Q3

REPORT INFORMATION
  Report Type: Spontaneous
  Country: US (occurrence: US)
  Receive Date: 20151118
  Receipt Date: 20180927
  Transmission Date: 20181010
  Serious: Yes (Hospitalization)
  Sender: FDA-Public Use
  Company Number: US-DSJP-DSU-2015-122802

PATIENT

DRUGS (4)
  1. BENICAR [Suspect]
     Active Substance: OLMESARTAN MEDOXOMIL
     Dosage: 10 MG, QD
     Route: 048
  2. BENICAR [Suspect]
     Active Substance: OLMESARTAN MEDOXOMIL
     Dosage: 40 MG, QD
     Route: 048
  3. BENICAR [Suspect]
     Active Substance: OLMESARTAN MEDOXOMIL
     Indication: HYPERTENSION
     Dosage: 40 MG 1/2 TAB,  QD
     Dates: start: 20100921, end: 2013
  4. BENICAR [Suspect]
     Active Substance: OLMESARTAN MEDOXOMIL
     Dosage: 20 MG, QD
     Route: 048

REACTIONS (11)
  - Hiatus hernia [Unknown]
  - Diverticulum intestinal [Unknown]
  - Gastrointestinal haemorrhage [Unknown]
  - Anorectal discomfort [Unknown]
  - Irritable bowel syndrome [Unknown]
  - Reactive gastropathy [Unknown]
  - Cholelithiasis [Recovered/Resolved]
  - Gastritis erosive [Unknown]
  - Sprue-like enteropathy [Not Recovered/Not Resolved]
  - Acute kidney injury [Recovering/Resolving]
  - Incorrect dose administered [Unknown]

NARRATIVE: CASE EVENT DATE: 2010
